FAERS Safety Report 6036390-6 (Version None)
Quarter: 2009Q1

REPORT INFORMATION
  Report Type: 
  Country: None (occurrence: None)
  Receive Date: 20090112
  Receipt Date: 20090106
  Transmission Date: 20090719
  Serious: Yes (Death, Life-Threatening, Hospitalization)
  Sender: FDA-Public Use
  Company Number: US025253

PATIENT
  Age: 66 Year
  Sex: Male
  Weight: 61.2356 kg

DRUGS (1)
  1. TREANDA [Suspect]
     Indication: CHRONIC LYMPHOCYTIC LEUKAEMIA
     Dosage: 184 MG Q4WKS INTRAVENOUS
     Route: 042
     Dates: start: 20080630, end: 20080807

REACTIONS (17)
  - ASCITES [None]
  - BONE MARROW FAILURE [None]
  - BRONCHOPULMONARY ASPERGILLOSIS [None]
  - DEHYDRATION [None]
  - DIALYSIS [None]
  - DRUG EFFECT DECREASED [None]
  - FEBRILE NEUTROPENIA [None]
  - FLUID OVERLOAD [None]
  - HYPOTENSION [None]
  - HYPOTHYROIDISM [None]
  - HYPOVOLAEMIA [None]
  - LUNG ABSCESS [None]
  - NORMOCHROMIC NORMOCYTIC ANAEMIA [None]
  - PLEURAL EFFUSION [None]
  - PNEUMONIA [None]
  - RENAL FAILURE ACUTE [None]
  - SEPSIS [None]
